FAERS Safety Report 10029357 (Version 1)
Quarter: 2014Q1

REPORT INFORMATION
  Report Type: Report from Study
  Country: ES (occurrence: ES)
  Receive Date: 20140322
  Receipt Date: 20140322
  Transmission Date: 20141002
  Serious: Yes (Hospitalization)
  Sender: FDA-Public Use
  Company Number: PHHY2014ES032787

PATIENT
  Age: 7 Year
  Sex: Female
  Weight: 36 kg

DRUGS (3)
  1. AFINITOR [Suspect]
  2. OXCARBAZEPINE [Concomitant]
     Dosage: 600 MG, Q12H
     Dates: start: 20130423
  3. VALPROATE [Concomitant]
     Dosage: 520 MG, Q12H

REACTIONS (1)
  - Partial seizures [Recovered/Resolved]
